FAERS Safety Report 18865405 (Version 1)
Quarter: 2021Q1

REPORT INFORMATION
  Report Type: Spontaneous
  Country: US (occurrence: US)
  Receive Date: 20210209
  Receipt Date: 20210209
  Transmission Date: 20210420
  Serious: Yes (Life-Threatening, Hospitalization)
  Sender: FDA-Public Use
  Company Number: None

PATIENT
  Age: 84 Year
  Sex: Female
  Weight: 86.2 kg

DRUGS (1)
  1. BAMLANIVIMAB. [Suspect]
     Active Substance: BAMLANIVIMAB
     Route: 042
     Dates: start: 20210206, end: 20210206

REACTIONS (4)
  - Enlarged uvula [None]
  - Pharyngeal swelling [None]
  - Dysphonia [None]
  - Infusion related reaction [None]

NARRATIVE: CASE EVENT DATE: 20210206
